FAERS Safety Report 13380932 (Version 2)
Quarter: 2017Q1

REPORT INFORMATION
  Report Type: Spontaneous
  Country: US (occurrence: US)
  Receive Date: 20170329
  Receipt Date: 20170331
  Transmission Date: 20170429
  Serious: No
  Sender: FDA-Public Use
  Company Number: US-BAYER-2017-059669

PATIENT
  Sex: Female

DRUGS (1)
  1. ALEVE [Suspect]
     Active Substance: NAPROXEN SODIUM
     Dosage: UNK

REACTIONS (7)
  - Dry mouth [Unknown]
  - Asthenia [Unknown]
  - Somnolence [Unknown]
  - Feeling abnormal [Unknown]
  - Hypersomnia [None]
  - Dysarthria [Unknown]
  - Tremor [Unknown]
